FAERS Safety Report 9678752 (Version 2)
Quarter: 2013Q4

REPORT INFORMATION
  Report Type: Report from Study
  Country: US (occurrence: US)
  Receive Date: 20131108
  Receipt Date: 20131108
  Transmission Date: 20140711
  Serious: Yes (Death, Hospitalization)
  Sender: FDA-Public Use
  Company Number: US-BRISTOL-MYERS SQUIBB COMPANY-15289515

PATIENT
  Age: 61 Year
  Sex: Male

DRUGS (11)
  1. IPILIMUMAB [Suspect]
     Indication: MALIGNANT MELANOMA
     Dosage: 26JUL-26JUL10:299MG (1)?16AUG-16AUG10:284MG (1)?07SEP-07SEP10:261MG (1)
     Route: 042
     Dates: start: 20100726, end: 20100907
  2. LANTUS [Concomitant]
     Dosage: 1 DF=10UNITS?AT BED TIME
     Route: 058
  3. INSULIN SLIDING SCALE [Concomitant]
  4. DOXAZOSIN [Concomitant]
     Dosage: AT BEDTIME
     Route: 048
  5. DOCUSATE [Concomitant]
     Route: 048
  6. NEXIUM [Concomitant]
     Route: 048
  7. WARFARIN [Concomitant]
     Route: 048
  8. MORPHINE [Concomitant]
     Indication: PAIN
     Dosage: PRN
     Route: 048
  9. ZOFRAN [Concomitant]
     Indication: NAUSEA
     Dosage: PRN
     Route: 048
  10. TUMS [Concomitant]
     Indication: DYSPEPSIA
     Dosage: 2 DF=2 TABS?PRN
     Route: 048
  11. MILK OF MAGNESIA [Concomitant]
     Indication: CONSTIPATION
     Dosage: PRN
     Route: 048

REACTIONS (4)
  - Malignant neoplasm progression [Fatal]
  - Adrenal insufficiency [Recovered/Resolved]
  - Diarrhoea [Recovered/Resolved]
  - Hypovolaemia [Recovered/Resolved]
